FAERS Safety Report 7763755-4 (Version None)
Quarter: 2011Q3

REPORT INFORMATION
  Report Type: 
  Country: None (occurrence: None)
  Receive Date: 20110919
  Receipt Date: 20110906
  Transmission Date: 20111222
  Serious: Yes (Other)
  Sender: FDA-Public Use
  Company Number: B0746964A

PATIENT

DRUGS (1)
  1. ACYCLOVIR [Suspect]

REACTIONS (1)
  - ACUTE GENERALISED EXANTHEMATOUS PUSTULOSIS [None]
